FAERS Safety Report 13337781 (Version 1)
Quarter: 2017Q1

REPORT INFORMATION
  Report Type: Spontaneous
  Country: US (occurrence: US)
  Receive Date: 20170315
  Receipt Date: 20170315
  Transmission Date: 20170428
  Serious: No
  Sender: FDA-Public Use
  Company Number: US-BAYER-2017-048654

PATIENT
  Age: 76 Year
  Sex: Female
  Weight: 79 kg

DRUGS (3)
  1. QUINAPRIL. [Concomitant]
     Active Substance: QUINAPRIL
  2. INSULIN [Concomitant]
     Active Substance: INSULIN NOS
  3. MIRALAX [Suspect]
     Active Substance: POLYETHYLENE GLYCOL 3350
     Indication: GASTROINTESTINAL DISORDER
     Dosage: UNK
     Route: 048
     Dates: start: 20170311, end: 20170313

REACTIONS (2)
  - Product use issue [None]
  - Product use issue [Unknown]

NARRATIVE: CASE EVENT DATE: 20170311
